FAERS Safety Report 8552279-2 (Version None)
Quarter: 2012Q3

REPORT INFORMATION
  Report Type: 
  Country: None (occurrence: None)
  Receive Date: 20120723
  Receipt Date: 20120723
  Transmission Date: 20120928
  Serious: Yes (Hospitalization)
  Sender: FDA-Public Use
  Company Number: None

PATIENT
  Age: 27 Year
  Sex: Female
  Weight: 131.5431 kg

DRUGS (1)
  1. NEOMYCIN AND POLYMYXIN B SULFATE [Suspect]
     Dates: start: 20120720, end: 20120720

REACTIONS (6)
  - HYPOAESTHESIA [None]
  - PAIN [None]
  - VASOCONSTRICTION [None]
  - NECK PAIN [None]
  - VOMITING [None]
  - DEAFNESS UNILATERAL [None]
